FAERS Safety Report 25778504 (Version 1)
Quarter: 2025Q3

REPORT INFORMATION
  Report Type: Spontaneous
  Country: US (occurrence: US)
  Receive Date: 20250909
  Receipt Date: 20250909
  Transmission Date: 20251020
  Serious: Yes (Other)
  Sender: PFIZER
  Company Number: US-PFIZER INC-PV202500107247

PATIENT
  Age: 90 Year
  Sex: Male
  Weight: 83.71 kg

DRUGS (11)
  1. DEMEROL [Suspect]
     Active Substance: MEPERIDINE HYDROCHLORIDE
     Indication: Prostate cancer
  2. ELIGARD [Suspect]
     Active Substance: LEUPROLIDE ACETATE
  3. PROVENGE [Suspect]
     Active Substance: SIPULEUCEL-T
     Indication: Chills
  4. LEUPROLIDE ACETATE [Concomitant]
     Active Substance: LEUPROLIDE ACETATE
  5. ALEVE ARTHRITIS [NAPROXEN SODIUM] [Concomitant]
  6. CALTRATE [Concomitant]
     Active Substance: CALCIUM CARBONATE
  7. VITAMIN B COMPLEX [Concomitant]
     Active Substance: CYANOCOBALAMIN\DEXPANTHENOL\NIACINAMIDE\PYRIDOXINE HYDROCHLORIDE\RIBOFLAVIN 5^-PHOSPHATE SODIUM\THIA
  8. ZYTIGA [Concomitant]
     Active Substance: ABIRATERONE ACETATE
  9. ADVANCED LYCOPENE [Concomitant]
  10. VITAMIN D3 [Concomitant]
     Active Substance: CHOLECALCIFEROL
  11. VITAMINS NOS [Concomitant]
     Active Substance: VITAMINS

REACTIONS (16)
  - Systemic inflammatory response syndrome [Unknown]
  - Hypoxia [Unknown]
  - Retching [Unknown]
  - Atelectasis [Unknown]
  - Infusion related reaction [Unknown]
  - Tinnitus [Unknown]
  - Oxygen saturation decreased [Unknown]
  - Myalgia [Unknown]
  - Pain [Unknown]
  - Dehydration [Unknown]
  - Pollakiuria [Unknown]
  - Chills [Unknown]
  - Vomiting [Unknown]
  - Tremor [Unknown]
  - Nausea [Unknown]
  - Temperature intolerance [Unknown]

NARRATIVE: CASE EVENT DATE: 20140519
